FAERS Safety Report 20738304 (Version 2)
Quarter: 2022Q4

REPORT INFORMATION
  Report Type: Spontaneous
  Country: US (occurrence: US)
  Receive Date: 20220422
  Receipt Date: 20221029
  Transmission Date: 20230113
  Serious: Yes (Other)
  Sender: FDA-Public Use
  Company Number: None

PATIENT

DRUGS (2)
  1. GEMCITABINE [Suspect]
     Active Substance: GEMCITABINE
     Indication: Bladder cancer
     Dosage: 6 WEEKLY INTRAVESICAL INSTILLATIONS
     Dates: start: 201305, end: 202104
  2. DOCETAXEL [Suspect]
     Active Substance: DOCETAXEL
     Indication: Bladder cancer
     Dosage: 6 WEEKLY INTRAVESICAL INSTILLATIONS
     Dates: start: 201305, end: 202104

REACTIONS (2)
  - Pollakiuria [Unknown]
  - Nocturia [Unknown]
